FAERS Safety Report 16536218 (Version 1)
Quarter: 2019Q3

REPORT INFORMATION
  Report Type: Spontaneous
  Country: US (occurrence: US)
  Receive Date: 20190705
  Receipt Date: 20190705
  Transmission Date: 20191004
  Serious: No
  Sender: FDA-Public Use
  Company Number: US-PFIZER INC-2019288359

PATIENT
  Age: 97 Year
  Sex: Female

DRUGS (2)
  1. LYRICA [Suspect]
     Active Substance: PREGABALIN
     Dosage: 75 MG, DAILY (TAKING LYRICA 25MG IN THE MORNING AND 50MG AT NIGHT)
  2. LYRICA [Suspect]
     Active Substance: PREGABALIN
     Dosage: 25 MG, 1X/DAY (25MG DURING THE DAY)

REACTIONS (1)
  - Malaise [Not Recovered/Not Resolved]
